FAERS Safety Report 25337934 (Version 3)
Quarter: 2025Q3

REPORT INFORMATION
  Report Type: Report from Study
  Country: US (occurrence: US)
  Receive Date: 20250520
  Receipt Date: 20250714
  Transmission Date: 20251021
  Serious: Yes (Other)
  Sender: ABBVIE
  Company Number: US-ABBVIE-6287696

PATIENT
  Age: 54 Year
  Sex: Male

DRUGS (2)
  1. HUMIRA [Suspect]
     Active Substance: ADALIMUMAB
     Indication: Colitis ulcerative
     Route: 058
     Dates: start: 2019, end: 2025
  2. HUMIRA [Suspect]
     Active Substance: ADALIMUMAB
     Route: 058
     Dates: start: 2025

REACTIONS (5)
  - Tendon rupture [Recovering/Resolving]
  - Ankle fracture [Unknown]
  - Fall [Recovering/Resolving]
  - Ligament rupture [Recovering/Resolving]
  - Colitis ulcerative [Not Recovered/Not Resolved]
